FAERS Safety Report 4824328-6 (Version None)
Quarter: 2005Q4

REPORT INFORMATION
  Report Type: 
  Country: None (occurrence: None)
  Receive Date: 20051108
  Receipt Date: 20051024
  Transmission Date: 20060501
  Serious: Yes (Hospitalization, Other)
  Sender: FDA-Public Use
  Company Number: USA0510111750

PATIENT
  Age: 77 Year
  Sex: Female
  Weight: 75 kg

DRUGS (1)
  1. FORTEO [Suspect]
     Indication: OSTEOPOROSIS
     Dosage: 20 UG DAY
     Dates: start: 20050101

REACTIONS (9)
  - ANEURYSM [None]
  - BLOOD BLISTER [None]
  - BRONCHITIS [None]
  - CARDIAC FAILURE CONGESTIVE [None]
  - DYSSTASIA [None]
  - HAEMORRHAGE [None]
  - MEDICAL DEVICE COMPLICATION [None]
  - STAPHYLOCOCCAL INFECTION [None]
  - URINARY TRACT INFECTION [None]
